FAERS Safety Report 13917998 (Version 1)
Quarter: 2017Q3

REPORT INFORMATION
  Report Type: Spontaneous
  Country: US (occurrence: US)
  Receive Date: 20170829
  Receipt Date: 20170829
  Transmission Date: 20171127
  Serious: No
  Sender: FDA-Public Use
  Company Number: US-SA-2016SA206926

PATIENT
  Age: 20 Year
  Sex: Female
  Weight: 107.9 kg

DRUGS (16)
  1. CATHFLO ACTIVASE [Concomitant]
     Active Substance: ALTEPLASE
     Indication: FLUSHING
     Route: 042
     Dates: start: 20160510
  2. ALBUTEROL. [Concomitant]
     Active Substance: ALBUTEROL
     Route: 055
     Dates: start: 20150929
  3. LORATADINE. [Concomitant]
     Active Substance: LORATADINE
     Route: 048
     Dates: start: 20150929
  4. PROVENTIL HFA [Concomitant]
     Active Substance: ALBUTEROL SULFATE
     Dosage: DOSE:1 PUFF(S)
     Route: 055
     Dates: start: 20140319
  5. FABRAZYME [Suspect]
     Active Substance: AGALSIDASE BETA
     Indication: FABRY^S DISEASE
     Route: 042
     Dates: start: 20150608
  6. BENZOYL PEROXIDE/CLINDAMYCIN [Concomitant]
     Dates: start: 20160614
  7. NORMAL SALINE [Concomitant]
     Active Substance: SODIUM CHLORIDE
     Indication: FLUSHING
     Dosage: 0.9%
     Route: 042
     Dates: start: 20160510
  8. TRAMADOL. [Concomitant]
     Active Substance: TRAMADOL
     Dosage: EVERY 4-6 HOURS AS NEEDED
     Route: 048
     Dates: start: 20160510
  9. BUPROPION. [Concomitant]
     Active Substance: BUPROPION
     Route: 048
     Dates: start: 20140319
  10. AMITRIPTYLINE [Concomitant]
     Active Substance: AMITRIPTYLINE
     Route: 048
     Dates: start: 20140902
  11. TYLENOL [Concomitant]
     Active Substance: ACETAMINOPHEN
     Route: 048
     Dates: start: 20131001
  12. ACETAMINOPHEN. [Concomitant]
     Active Substance: ACETAMINOPHEN
     Route: 048
     Dates: start: 20160510
  13. EPIPEN [Concomitant]
     Active Substance: EPINEPHRINE
     Dates: start: 20160510
  14. DIPHENHYDRAMINE. [Concomitant]
     Active Substance: DIPHENHYDRAMINE
     Route: 048
     Dates: start: 20160510
  15. MELOXICAM. [Concomitant]
     Active Substance: MELOXICAM
     Route: 048
     Dates: start: 20140319
  16. GABAPENTIN. [Concomitant]
     Active Substance: GABAPENTIN
     Route: 048
     Dates: start: 20140206

REACTIONS (1)
  - Upper respiratory tract infection [Recovered/Resolved]
